FAERS Safety Report 16787720 (Version 2)
Quarter: 2019Q4

REPORT INFORMATION
  Report Type: Spontaneous
  Country: US (occurrence: US)
  Receive Date: 20190909
  Receipt Date: 20191009
  Transmission Date: 20200122
  Serious: Yes (Other)
  Sender: FDA-Public Use
  Company Number: US-CHIESI USA, INC.-US-2019CHI000336

PATIENT

DRUGS (11)
  1. CLEVIPREX [Suspect]
     Active Substance: CLEVIDIPINE
     Dosage: 16 MG/H, UNK
     Route: 042
     Dates: start: 20190824, end: 20190824
  2. CLEVIPREX [Suspect]
     Active Substance: CLEVIDIPINE
     Dosage: 4 MG/H, UNK
     Route: 042
     Dates: start: 20190824, end: 20190824
  3. NORVASC [Concomitant]
     Active Substance: AMLODIPINE BESYLATE
     Indication: PRODUCT USED FOR UNKNOWN INDICATION
     Dosage: UNK
  4. CLEVIPREX [Suspect]
     Active Substance: CLEVIDIPINE
     Indication: HYPERTENSIVE EMERGENCY
     Dosage: 1 MG/H, UNK
     Route: 042
     Dates: start: 20190824, end: 20190824
  5. CLEVIPREX [Suspect]
     Active Substance: CLEVIDIPINE
     Dosage: 10 MG/H, UNK
     Route: 042
     Dates: start: 20190824, end: 20190824
  6. HYDRALAZINE [Concomitant]
     Active Substance: HYDRALAZINE HYDROCHLORIDE
     Indication: PRODUCT USED FOR UNKNOWN INDICATION
     Dosage: UNK, PRN
  7. CLEVIPREX [Suspect]
     Active Substance: CLEVIDIPINE
     Dosage: 2 MG/H, UNK
     Route: 042
     Dates: start: 20190824, end: 20190824
  8. CLEVIPREX [Suspect]
     Active Substance: CLEVIDIPINE
     Dosage: 14 MG/H, UNK
     Route: 042
     Dates: start: 20190824, end: 20190824
  9. CLEVIPREX [Suspect]
     Active Substance: CLEVIDIPINE
     Dosage: 8 MG/H, UNK
     Route: 042
     Dates: start: 20190824, end: 20190824
  10. LABETALOL [Concomitant]
     Active Substance: LABETALOL\LABETALOL HYDROCHLORIDE
     Indication: PRODUCT USED FOR UNKNOWN INDICATION
     Dosage: UNK
  11. CLEVIPREX [Suspect]
     Active Substance: CLEVIDIPINE
     Dosage: 15 MG/H, UNK
     Route: 042
     Dates: start: 20190824, end: 20190824

REACTIONS (3)
  - Seizure [Recovering/Resolving]
  - Hypertensive emergency [Recovering/Resolving]
  - Condition aggravated [Recovering/Resolving]

NARRATIVE: CASE EVENT DATE: 20190824
